FAERS Safety Report 15134573 (Version 1)
Quarter: 2018Q3

REPORT INFORMATION
  Report Type: Spontaneous
  Country: GB (occurrence: GB)
  Receive Date: 20180712
  Receipt Date: 20180712
  Transmission Date: 20181010
  Serious: Yes (Other)
  Sender: FDA-Public Use
  Company Number: GB-TEVA-2018-GB-924015

PATIENT
  Age: 71 Year
  Sex: Female
  Weight: 54.88 kg

DRUGS (14)
  1. CANDESARTAN. [Concomitant]
     Active Substance: CANDESARTAN
     Dosage: 32 MILLIGRAM DAILY;
  2. SPIRIVA [Concomitant]
     Active Substance: TIOTROPIUM BROMIDE MONOHYDRATE
     Dosage: 18 MICROGRAM DAILY;
     Route: 055
  3. SELENIUM [Concomitant]
     Active Substance: SELENIUM
  4. BENDROFLUMETHIAZIDE [Concomitant]
     Active Substance: BENDROFLUMETHIAZIDE
     Dosage: 2.5 MILLIGRAM DAILY;
  5. AMITRIPTYLINE [Concomitant]
     Active Substance: AMITRIPTYLINE
     Dosage: 20 MILLIGRAM DAILY;
  6. BISOPROLOL [Concomitant]
     Active Substance: BISOPROLOL
     Dosage: 2.5 MILLIGRAM DAILY;
  7. ALLIUM SATIVUM [Concomitant]
  8. COD?LIVER OIL [Concomitant]
     Active Substance: COD LIVER OIL
     Dosage: HIGH STRENGTH
  9. FUROSEMIDE. [Suspect]
     Active Substance: FUROSEMIDE
     Indication: PERIPHERAL SWELLING
     Dosage: 20 MILLIGRAM DAILY;
     Route: 048
     Dates: start: 20180413, end: 20180417
  10. COLECALCIFEROL [Concomitant]
     Active Substance: CHOLECALCIFEROL
  11. SYMBICORT [Concomitant]
     Active Substance: BUDESONIDE\FORMOTEROL FUMARATE DIHYDRATE
     Dosage: 4 DOSAGE FORMS DAILY; PUFFS
  12. BRICANYL [Concomitant]
     Active Substance: TERBUTALINE SULFATE
  13. TURMERIC [Concomitant]
     Active Substance: HERBALS\TURMERIC
  14. MULTIVITAMIN [Concomitant]
     Active Substance: VITAMINS

REACTIONS (2)
  - Panic attack [Recovered/Resolved]
  - Anxiety [Recovered/Resolved]

NARRATIVE: CASE EVENT DATE: 20180414
